FAERS Safety Report 9356718 (Version 1)
Quarter: 2013Q2

REPORT INFORMATION
  Report Type: Report from Study
  Country: BR (occurrence: BR)
  Receive Date: 20130619
  Receipt Date: 20130619
  Transmission Date: 20140414
  Serious: Yes (Other)
  Sender: FDA-Public Use
  Company Number: PHHY2013BR060570

PATIENT
  Age: 62 Year
  Sex: Male

DRUGS (4)
  1. DIOVAN [Suspect]
     Indication: HYPERTENSION
     Dosage: 1 DF, 320 MG IN THE MORNING A DAY
     Route: 048
  2. DIOVAN [Suspect]
     Dosage: 1 DF, 80 MG A DAY
     Route: 048
  3. SELOZOK [Concomitant]
     Indication: HYPERTENSION
     Dosage: 1 DF (100 MG) A DAY
     Route: 048
  4. SELOZOK [Concomitant]
     Dosage: 1 DF (50 MG) IN THE MORNING A DAY
     Route: 048

REACTIONS (2)
  - Venous occlusion [Recovered/Resolved]
  - Blood pressure systolic increased [Recovered/Resolved]
